FAERS Safety Report 10030164 (Version 1)
Quarter: 2014Q1

REPORT INFORMATION
  Report Type: Spontaneous
  Country: US (occurrence: US)
  Receive Date: 20140323
  Receipt Date: 20140323
  Transmission Date: 20141002
  Serious: No
  Sender: FDA-Public Use
  Company Number: US-ALLERGAN-1310694US

PATIENT
  Age: 64 Year
  Sex: Female

DRUGS (4)
  1. LATISSE 0.03% [Suspect]
     Indication: GROWTH OF EYELASHES
     Dosage: 2 GTT, QHS
  2. RESTASIS [Concomitant]
     Indication: DRY EYE
  3. BLOOD PRESSURE MEDICATION NOS [Concomitant]
     Indication: HYPERTENSION
     Dosage: UNK
  4. SYSTANE [Concomitant]
     Indication: DRY EYE
     Dosage: 4-15 TIMES PER DAY

REACTIONS (1)
  - Therapeutic response unexpected [Unknown]
